FAERS Safety Report 12084424 (Version 1)
Quarter: 2016Q1

REPORT INFORMATION
  Report Type: Spontaneous
  Country: FR (occurrence: FR)
  Receive Date: 20160217
  Receipt Date: 20160217
  Transmission Date: 20160526
  Serious: Yes (Hospitalization)
  Sender: FDA-Public Use
  Company Number: FR-ASTRAZENECA-2016SE15616

PATIENT
  Age: 81 Year
  Sex: Male

DRUGS (4)
  1. BIPRETERAX [Suspect]
     Active Substance: INDAPAMIDE\PERINDOPRIL
     Route: 048
  2. LERCAN [Suspect]
     Active Substance: LERCANIDIPINE
     Route: 048
  3. GARDENAL [Suspect]
     Active Substance: PHENOBARBITAL
     Route: 048
  4. ZOLTUM [Suspect]
     Active Substance: OMEPRAZOLE
     Route: 048

REACTIONS (2)
  - Tubulointerstitial nephritis [Recovering/Resolving]
  - Nephritis allergic [Unknown]

NARRATIVE: CASE EVENT DATE: 201512
